FAERS Safety Report 8600085-2 (Version None)
Quarter: 2012Q3

REPORT INFORMATION
  Report Type: 
  Country: None (occurrence: None)
  Receive Date: 20120816
  Receipt Date: 20120809
  Transmission Date: 20120928
  Serious: Yes (Death, Hospitalization)
  Sender: FDA-Public Use
  Company Number: US-BAXTER-2012BAX013460

PATIENT
  Sex: Male

DRUGS (3)
  1. DIANEAL [Suspect]
     Indication: PERITONEAL DIALYSIS
     Route: 033
     Dates: end: 20120809
  2. DIANEAL [Suspect]
     Route: 033
     Dates: end: 20120809
  3. DIANEAL [Suspect]
     Route: 033
     Dates: end: 20120809

REACTIONS (2)
  - DYSPNOEA [None]
  - DEATH [None]
